FAERS Safety Report 5347316-2 (Version None)
Quarter: 2007Q2

REPORT INFORMATION
  Report Type: 
  Country: None (occurrence: None)
  Receive Date: 20070606
  Receipt Date: 20070525
  Transmission Date: 20071010
  Serious: Yes (Hospitalization)
  Sender: FDA-Public Use
  Company Number: CA-JNJFOC-20061100431

PATIENT
  Sex: Male

DRUGS (4)
  1. REMICADE [Suspect]
     Route: 042
  2. REMICADE [Suspect]
     Route: 042
  3. REMICADE [Suspect]
     Indication: CROHN'S DISEASE
     Dosage: 2 INFUSIONS ON UNKNOWN DATES
     Route: 042
  4. SOLU-CORTEF [Concomitant]
     Indication: PREMEDICATION
     Route: 042

REACTIONS (7)
  - CHILLS [None]
  - DIZZINESS [None]
  - GROIN PAIN [None]
  - INFUSION RELATED REACTION [None]
  - PRURITUS [None]
  - PYREXIA [None]
  - VOMITING [None]
